FAERS Safety Report 4801630-5 (Version None)
Quarter: 2005Q4

REPORT INFORMATION
  Report Type: 
  Country: None (occurrence: None)
  Receive Date: 20051018
  Receipt Date: 20050912
  Transmission Date: 20060501
  Serious: Yes (Other)
  Sender: FDA-Public Use
  Company Number: US-BRISTOL-MYERS SQUIBB COMPANY-13107867

PATIENT
  Age: 48 Year
  Sex: Male

DRUGS (8)
  1. ERBITUX [Suspect]
     Indication: COLON CANCER METASTATIC
     Dosage: 800 MG TO BE INFUSED.
     Route: 042
     Dates: start: 20050902, end: 20050902
  2. BENADRYL [Concomitant]
     Dates: start: 20050902
  3. DECADRON [Concomitant]
     Dates: start: 20050902
  4. DILAUDID [Concomitant]
     Route: 048
  5. ACTIQ [Concomitant]
     Route: 048
  6. KYTRIL [Concomitant]
     Dates: start: 20050902
  7. NEXIUM [Concomitant]
  8. OXYCONTIN [Concomitant]
     Route: 048

REACTIONS (3)
  - BLOOD PRESSURE DECREASED [None]
  - FEELING ABNORMAL [None]
  - OXYGEN SATURATION DECREASED [None]
